FAERS Safety Report 6255238-8 (Version None)
Quarter: 2009Q3

REPORT INFORMATION
  Report Type: 
  Country: None (occurrence: None)
  Receive Date: 20090702
  Receipt Date: 20090619
  Transmission Date: 20100115
  Serious: Yes (Hospitalization)
  Sender: FDA-Public Use
  Company Number: PHHO2009US08113

PATIENT
  Sex: Male

DRUGS (2)
  1. RAD 666 RAD+TAB [Suspect]
     Indication: HEAD AND NECK CANCER
     Dosage: 5 MG EVERY OTHER DAY
     Route: 048
     Dates: start: 20090427
  2. CISPLATIN [Concomitant]
     Indication: HEAD AND NECK CANCER
     Dosage: LOW DOSE WEEKLY
     Dates: start: 20090427

REACTIONS (4)
  - COUGH [None]
  - HAEMOPTYSIS [None]
  - PHARYNGEAL HAEMORRHAGE [None]
  - PNEUMONIA [None]
